FAERS Safety Report 9635821 (Version 3)
Quarter: 2013Q4

REPORT INFORMATION
  Report Type: Report from Study
  Country: US (occurrence: US)
  Receive Date: 20131021
  Receipt Date: 20131107
  Transmission Date: 20140711
  Serious: Yes (Death, Hospitalization)
  Sender: FDA-Public Use
  Company Number: US-ACTELION-A-US2012-68423

PATIENT
  Age: 41 Year
  Sex: Female

DRUGS (3)
  1. TRACLEER [Suspect]
     Indication: PULMONARY ARTERIAL HYPERTENSION
     Dosage: 125 MG, UNK
     Route: 048
     Dates: start: 20121128
  2. TRACLEER [Suspect]
     Dosage: 62.5 MG, BID
     Route: 048
     Dates: start: 20120605, end: 20121127
  3. COUMADIN [Concomitant]

REACTIONS (4)
  - Death [Fatal]
  - Pulmonary arterial hypertension [Unknown]
  - Dyspnoea [Unknown]
  - Respiratory failure [Recovering/Resolving]
